FAERS Safety Report 24113876 (Version 3)
Quarter: 2024Q3

REPORT INFORMATION
  Report Type: Spontaneous
  Country: DE (occurrence: DE)
  Receive Date: 20240720
  Receipt Date: 20240913
  Transmission Date: 20241016
  Serious: Yes (Other)
  Sender: CELLTRION
  Company Number: DE-CELLTRION INC.-2024DE017296

PATIENT

DRUGS (4)
  1. RITUXIMAB [Suspect]
     Active Substance: RITUXIMAB
     Indication: Muscular weakness
     Dosage: UNK
     Route: 065
  2. VELCADE [Suspect]
     Active Substance: BORTEZOMIB
     Indication: Muscular weakness
     Dosage: UNK (ADDITIONAL INFORMATION ON DRUG: PROVIDE THE REASON WHY SAMPLE IS NOT AVAILABLE :: UNKNOWN LOCAT
     Route: 065
  3. ECULIZUMAB [Suspect]
     Active Substance: ECULIZUMAB
     Indication: Muscular weakness
     Dosage: UNK
     Route: 005
  4. EFGARTIGIMOD ALFA [Suspect]
     Active Substance: EFGARTIGIMOD ALFA
     Indication: Muscular weakness
     Dosage: UNK
     Route: 065

REACTIONS (3)
  - Muscular weakness [Unknown]
  - Multiple-drug resistance [Unknown]
  - Off label use [Unknown]
